FAERS Safety Report 9871848 (Version 2)
Quarter: 2014Q1

REPORT INFORMATION
  Report Type: Spontaneous
  Country: US (occurrence: US)
  Receive Date: 20140205
  Receipt Date: 20140205
  Transmission Date: 20141002
  Serious: Yes (Hospitalization)
  Sender: FDA-Public Use
  Company Number: US-B.I. PHARMACEUTICALS,INC./RIDGEFIELD-2013-BI-43425BP

PATIENT
  Sex: Male
  Weight: 95.25 kg

DRUGS (6)
  1. PRADAXA [Suspect]
     Indication: ATRIAL FIBRILLATION
     Dosage: 300 MG
     Route: 048
     Dates: start: 20120226, end: 20130207
  2. ASPIRIN [Concomitant]
     Dosage: 81 MG
     Route: 048
  3. ENABLEX [Concomitant]
     Dosage: 7.5 MG
     Route: 048
  4. CRESTOR [Concomitant]
     Dosage: 10 MG
     Route: 048
  5. METOPROLOL TARTRATE [Concomitant]
     Dosage: 200 MG
     Route: 048
  6. SLOW-MAG [Concomitant]
     Route: 048

REACTIONS (2)
  - Upper gastrointestinal haemorrhage [Recovered/Resolved]
  - Anaemia [Unknown]
